FAERS Safety Report 8588926-9 (Version None)
Quarter: 2012Q3

REPORT INFORMATION
  Report Type: 
  Country: None (occurrence: None)
  Receive Date: 20120813
  Receipt Date: 20120807
  Transmission Date: 20120928
  Serious: Yes (Other)
  Sender: FDA-Public Use
  Company Number: US-RB-043364-12

PATIENT
  Age: 32 Year
  Sex: Female

DRUGS (1)
  1. MUCINEX [Suspect]
     Indication: PRODUCT USED FOR UNKNOWN INDICATION
     Dosage: PATIENT STARTED PRODUCT IN 2011 OR THE START OF 2012.
     Route: 048

REACTIONS (3)
  - FEELING ABNORMAL [None]
  - INTENTIONAL OVERDOSE [None]
  - DRUG ABUSE [None]
